FAERS Safety Report 6983525-4 (Version None)
Quarter: 2010Q3

REPORT INFORMATION
  Report Type: 
  Country: None (occurrence: None)
  Receive Date: 20100914
  Receipt Date: 20080812
  Transmission Date: 20110219
  Serious: No
  Sender: FDA-Public Use
  Company Number: US-WYE-H05579108

PATIENT
  Age: 40 Year
  Sex: Female
  Weight: 61.29 kg

DRUGS (3)
  1. ADVIL LIQUI-GELS [Suspect]
     Indication: PAIN
     Dosage: 2-3 TABLET AS NEEDED
     Route: 048
  2. SINGULAIR [Concomitant]
  3. ALLEGRA [Concomitant]

REACTIONS (2)
  - CONDITION AGGRAVATED [None]
  - ULCER [None]
